FAERS Safety Report 8471076-X (Version None)
Quarter: 2012Q2

REPORT INFORMATION
  Report Type: 
  Country: None (occurrence: None)
  Receive Date: 20120627
  Receipt Date: 20120314
  Transmission Date: 20120825
  Serious: No
  Sender: FDA-Public Use
  Company Number: US-GLAXOSMITHKLINE-A0969733A

PATIENT
  Age: 38 Year
  Sex: Female

DRUGS (2)
  1. LAMICTAL [Suspect]
     Indication: CONVULSION
     Dosage: 25MG PER DAY
     Route: 048
     Dates: start: 20120311, end: 20120314
  2. KEPPRA [Concomitant]

REACTIONS (2)
  - NAUSEA [None]
  - VOMITING [None]
